FAERS Safety Report 24352766 (Version 1)
Quarter: 2024Q3

REPORT INFORMATION
  Report Type: Report from Study
  Country: US (occurrence: US)
  Receive Date: 20240923
  Receipt Date: 20240923
  Transmission Date: 20241016
  Serious: No
  Sender: ROCHE
  Company Number: US-ROCHE-3480059

PATIENT

DRUGS (6)
  1. HERCEPTIN [Suspect]
     Active Substance: TRASTUZUMAB
     Indication: Oestrogen receptor assay positive
     Dosage: DATE OF SERVICE: 05/SEP/2023, 26/SEP/2023, 17/OCT/2023 (370 MG)
     Route: 041
  2. PERJETA [Suspect]
     Active Substance: PERTUZUMAB
     Indication: Oestrogen receptor assay positive
     Dosage: DATE OF SERVICE: 05/SEP/2023, 26/SEP/2023, 17/OCT/2023 (420 MG)
     Route: 042
  3. PALONOSETRON [Concomitant]
     Active Substance: PALONOSETRON
     Route: 042
  4. FOSAPREPITANT [Concomitant]
     Active Substance: FOSAPREPITANT
     Route: 042
  5. DOCETAXEL [Concomitant]
     Active Substance: DOCETAXEL\DOCETAXEL ANHYDROUS
     Route: 042
  6. CARBOPLATIN [Concomitant]
     Active Substance: CARBOPLATIN
     Route: 042

REACTIONS (4)
  - Off label use [Unknown]
  - Off label use [Unknown]
  - Haemoglobin decreased [Unknown]
  - Haematocrit decreased [Unknown]
